FAERS Safety Report 5201842-5 (Version None)
Quarter: 2007Q1

REPORT INFORMATION
  Report Type: 
  Country: None (occurrence: None)
  Receive Date: 20070104
  Receipt Date: 20061221
  Transmission Date: 20070707
  Serious: Yes (Other)
  Sender: FDA-Public Use
  Company Number: 2007SP000013

PATIENT
  Age: 77 Year
  Sex: Male

DRUGS (5)
  1. ISOSORBIDE MONONITRATE [Suspect]
     Indication: DRUG USE FOR UNKNOWN INDICATION
     Dosage: 10 MG; BID; PO
     Route: 048
     Dates: start: 20061114, end: 20061115
  2. ATENOLOL [Concomitant]
  3. CLOPIDOGREL [Concomitant]
  4. RAMIPRIL [Concomitant]
  5. SIMVASTATIN [Concomitant]

REACTIONS (2)
  - HYPERSENSITIVITY [None]
  - LIP SWELLING [None]
